FAERS Safety Report 14410741 (Version 1)
Quarter: 2018Q1

REPORT INFORMATION
  Report Type: Report from Study
  Country: ES (occurrence: ES)
  Receive Date: 20180119
  Receipt Date: 20180119
  Transmission Date: 20180509
  Serious: Yes (Other)
  Sender: FDA-Public Use
  Company Number: ES-TEVA-2018-ES-846771

PATIENT
  Age: 53 Year
  Sex: Female

DRUGS (1)
  1. COPAXONE [Suspect]
     Active Substance: GLATIRAMER ACETATE
     Indication: MULTIPLE SCLEROSIS
     Route: 058
     Dates: start: 20160101, end: 201801

REACTIONS (10)
  - Loss of consciousness [Unknown]
  - Pyrexia [Unknown]
  - Dyspnoea [Unknown]
  - Inappropriate schedule of drug administration [Unknown]
  - Paraesthesia [Unknown]
  - Tremor [Unknown]
  - Fatigue [Unknown]
  - Fall [Unknown]
  - Back pain [Unknown]
  - Tachycardia [Unknown]

NARRATIVE: CASE EVENT DATE: 201801
